FAERS Safety Report 8211348-7 (Version None)
Quarter: 2012Q1

REPORT INFORMATION
  Report Type: 
  Country: None (occurrence: None)
  Receive Date: 20120315
  Receipt Date: 20120315
  Transmission Date: 20120608
  Serious: Yes (Other)
  Sender: FDA-Public Use
  Company Number: None

PATIENT
  Age: 57 Year
  Sex: Female
  Weight: 77.11 kg

DRUGS (2)
  1. AMITIZA [Suspect]
     Indication: IRRITABLE BOWEL SYNDROME
     Dosage: 8MCG 1 PILL
     Route: 048
  2. AMITIZA [Suspect]
     Indication: CONSTIPATION
     Dosage: 8MCG 1 PILL
     Route: 048

REACTIONS (3)
  - RETCHING [None]
  - VOMITING PROJECTILE [None]
  - MALAISE [None]
